FAERS Safety Report 4621953-2 (Version None)
Quarter: 2005Q1

REPORT INFORMATION
  Report Type: 
  Country: None (occurrence: None)
  Receive Date: 20050329
  Receipt Date: 20050323
  Transmission Date: 20050727
  Serious: Yes (Death, Hospitalization)
  Sender: FDA-Public Use
  Company Number: PHEH2005US03528

PATIENT
  Age: 86 Year
  Sex: Female

DRUGS (1)
  1. ZELNORM [Suspect]
     Dosage: 6 MG, UNK
     Dates: start: 20040601

REACTIONS (3)
  - ABDOMINAL PAIN UPPER [None]
  - MEDICATION ERROR [None]
  - SEPTIC SHOCK [None]
